FAERS Safety Report 4604027-6 (Version None)
Quarter: 2005Q1

REPORT INFORMATION
  Report Type: 
  Country: None (occurrence: None)
  Receive Date: 20050309
  Receipt Date: 20050309
  Transmission Date: 20050727
  Serious: No
  Sender: FDA-Public Use
  Company Number: None

PATIENT
  Age: 53 Year
  Sex: Female
  Weight: 73.0291 kg

DRUGS (2)
  1. ALOXI [Suspect]
     Indication: BREAST CANCER
     Dosage: IVP
     Route: 042
     Dates: start: 20050228
  2. ALOXI [Suspect]

REACTIONS (3)
  - BRADYCARDIA [None]
  - HYPOTENSION [None]
  - LOSS OF CONSCIOUSNESS [None]
